FAERS Safety Report 10728185 (Version 2)
Quarter: 2015Q1

REPORT INFORMATION
  Report Type: Spontaneous
  Country: CN (occurrence: CN)
  Receive Date: 20150121
  Receipt Date: 20150330
  Transmission Date: 20150721
  Serious: Yes (Other)
  Sender: FDA-Public Use
  Company Number: CN-ASTRAZENECA-2015SE04875

PATIENT
  Age: 80 Year
  Sex: Female

DRUGS (5)
  1. SYMBICORT [Suspect]
     Active Substance: BUDESONIDE\FORMOTEROL FUMARATE DIHYDRATE
     Route: 055
  2. PULMICORT RESPULES [Suspect]
     Active Substance: BUDESONIDE
     Indication: LUNG DISORDER
     Dosage: 2 ML
     Route: 055
  3. PULMICORT RESPULES [Suspect]
     Active Substance: BUDESONIDE
     Indication: BRONCHITIS CHRONIC
     Dosage: 2 ML
     Route: 055
  4. BRICANYL [Suspect]
     Active Substance: TERBUTALINE SULFATE
     Dosage: 2 ML
     Route: 055
  5. PULMICORT RESPULES [Suspect]
     Active Substance: BUDESONIDE
     Indication: COR PULMONALE CHRONIC
     Dosage: 2 ML
     Route: 055

REACTIONS (4)
  - Oxygen saturation decreased [Unknown]
  - Dyspnoea [Recovering/Resolving]
  - Product use issue [Unknown]
  - Dysphoria [Recovering/Resolving]
